FAERS Safety Report 22000608 (Version 1)
Quarter: 2023Q1

REPORT INFORMATION
  Report Type: Spontaneous
  Country: US (occurrence: None)
  Receive Date: 20230215
  Receipt Date: 20230215
  Transmission Date: 20230418
  Serious: Yes (Other)
  Sender: FDA-Public Use
  Company Number: None

PATIENT
  Age: 24 Year
  Sex: Male
  Weight: 78.3 kg

DRUGS (5)
  1. CLOMIPRAMINE [Suspect]
     Active Substance: CLOMIPRAMINE
     Indication: Autism spectrum disorder
     Dosage: FREQUENCY : AT BEDTIME;?
     Route: 048
     Dates: start: 20221121, end: 20230109
  2. OLANZAPINE [Concomitant]
     Active Substance: OLANZAPINE
  3. LITHIUM [Concomitant]
     Active Substance: LITHIUM
  4. LORAZEPAM [Concomitant]
     Active Substance: LORAZEPAM
  5. TOPIRAMATE [Concomitant]
     Active Substance: TOPIRAMATE

REACTIONS (4)
  - Libido decreased [None]
  - Dry mouth [None]
  - Erectile dysfunction [None]
  - Intrusive thoughts [None]

NARRATIVE: CASE EVENT DATE: 20221230
